FAERS Safety Report 8090938-9 (Version None)
Quarter: 2012Q1

REPORT INFORMATION
  Report Type: 
  Country: None (occurrence: None)
  Receive Date: 20120128
  Receipt Date: 20110729
  Transmission Date: 20120608
  Serious: No
  Sender: FDA-Public Use
  Company Number: US-ABBOTT-11P-163-0842735-00

PATIENT
  Sex: Female

DRUGS (5)
  1. HUMIRA [Suspect]
     Indication: CROHN'S DISEASE
     Route: 058
     Dates: start: 20110411, end: 20110727
  2. BENADRYL [Concomitant]
     Indication: SEASONAL ALLERGY
  3. BENTYL [Concomitant]
     Indication: PRODUCT USED FOR UNKNOWN INDICATION
     Dosage: ONE OR TWO EVERY FOURS HOURS AS NEEDED
  4. PROZAC [Concomitant]
     Indication: PRODUCT USED FOR UNKNOWN INDICATION
     Dosage: DAILY AT NIGHT ONLY
  5. MECLIZINE [Concomitant]
     Indication: PRODUCT USED FOR UNKNOWN INDICATION

REACTIONS (4)
  - HEART RATE IRREGULAR [None]
  - OEDEMA PERIPHERAL [None]
  - HEART RATE INCREASED [None]
  - BLOOD ALKALINE PHOSPHATASE INCREASED [None]
